FAERS Safety Report 14689116 (Version 1)
Quarter: 2018Q1

REPORT INFORMATION
  Report Type: Spontaneous
  Country: US (occurrence: US)
  Receive Date: 20180327
  Receipt Date: 20180327
  Transmission Date: 20180509
  Serious: Yes (Life-Threatening, Hospitalization, Disabling)
  Sender: FDA-Public Use
  Company Number: None

PATIENT
  Age: 58 Year
  Sex: Male
  Weight: 80.1 kg

DRUGS (2)
  1. GADOBUTROL [Suspect]
     Active Substance: GADOBUTROL
     Indication: SCAN BRAIN
     Route: 042
  2. MECLIZINE [Concomitant]
     Active Substance: MECLIZINE HYDROCHLORIDE

REACTIONS (7)
  - Adverse reaction [None]
  - Memory impairment [None]
  - Feeling abnormal [None]
  - Hepatitis C [None]
  - Confusional state [None]
  - Agitation [None]
  - Hepatic function abnormal [None]

NARRATIVE: CASE EVENT DATE: 20171010
